FAERS Safety Report 10548607 (Version 2)
Quarter: 2014Q4

REPORT INFORMATION
  Report Type: Spontaneous
  Country: US (occurrence: None)
  Receive Date: 20141024
  Receipt Date: 20141124
  Transmission Date: 20150529
  Serious: Yes (Disabling, Other)
  Sender: FDA-Public Use
  Company Number: 2014-20562

PATIENT
  Age: 84 Year
  Sex: Male

DRUGS (8)
  1. EYLEA [Suspect]
     Active Substance: AFLIBERCEPT
     Indication: MACULAR DEGENERATION
     Route: 031
     Dates: start: 20130123, end: 20130123
  2. CRESTOR [Concomitant]
     Active Substance: ROSUVASTATIN CALCIUM
  3. CLONIDINE. [Concomitant]
     Active Substance: CLONIDINE
  4. FISH OIL [Concomitant]
     Active Substance: FISH OIL
  5. OCUVITE (ASCORBIC ACID, RETINOL, TOCOPHEROL) [Concomitant]
  6. LISINOPRIL. [Concomitant]
     Active Substance: LISINOPRIL
  7. ASPIRIN (ACETYLSALICYLIC ACID) [Concomitant]
     Active Substance: ASPIRIN
  8. ALLOPURINOL. [Concomitant]
     Active Substance: ALLOPURINOL

REACTIONS (6)
  - Vitrectomy [None]
  - Eye inflammation [None]
  - Eye haemorrhage [None]
  - Blindness [None]
  - Hypopyon [None]
  - Blindness transient [None]

NARRATIVE: CASE EVENT DATE: 20140911
